FAERS Safety Report 8020105-6 (Version None)
Quarter: 2012Q1

REPORT INFORMATION
  Report Type: 
  Country: None (occurrence: None)
  Receive Date: 20120103
  Receipt Date: 20111228
  Transmission Date: 20120608
  Serious: Yes (Hospitalization)
  Sender: FDA-Public Use
  Company Number: FR-ABBOTT-11P-056-0886865-00

PATIENT
  Sex: Female

DRUGS (3)
  1. PREDNISONE TAB [Concomitant]
  2. PREDNISONE TAB [Concomitant]
     Indication: MUSCULOSKELETAL PAIN
     Route: 048
  3. HUMIRA [Suspect]
     Indication: MUSCULOSKELETAL PAIN
     Route: 058
     Dates: start: 20111001

REACTIONS (5)
  - ECZEMA [None]
  - PUSTULAR PSORIASIS [None]
  - BURNING SENSATION [None]
  - PRURITUS [None]
  - PAIN [None]
